FAERS Safety Report 6346745-8 (Version None)
Quarter: 2009Q3

REPORT INFORMATION
  Report Type: 
  Country: None (occurrence: None)
  Receive Date: 20090904
  Receipt Date: 20090820
  Transmission Date: 20100115
  Serious: Yes (Other)
  Sender: FDA-Public Use
  Company Number: DSU-2009-01790

PATIENT
  Age: 61 Year
  Sex: Female

DRUGS (3)
  1. OLMESARTAN MEDOXOMIL [Suspect]
     Indication: DRUG USE FOR UNKNOWN INDICATION
     Dosage: 20 MG, (20 MG, QD), PER ORAL
     Route: 048
     Dates: start: 20060101, end: 20090501
  2. NORVASC [Suspect]
     Indication: HYPERTENSION
     Dosage: 5 MG (5 MG, QD), PER ORAL
     Route: 048
     Dates: start: 20090501
  3. LORATADINE (LORATADINE) (10 MILLIGRAM) (LORATADINE) [Concomitant]

REACTIONS (2)
  - PARAESTHESIA [None]
  - VITRECTOMY [None]
